FAERS Safety Report 26212007 (Version 1)
Quarter: 2025Q4

REPORT INFORMATION
  Report Type: Spontaneous
  Country: US (occurrence: US)
  Receive Date: 20251230
  Receipt Date: 20251230
  Transmission Date: 20260118
  Serious: Yes (Other)
  Sender: RANBAXY
  Company Number: US-SUN PHARMACEUTICAL INDUSTRIES INC-2025R1-543844

PATIENT
  Age: 48 Year
  Sex: Male

DRUGS (2)
  1. DAPSONE [Suspect]
     Active Substance: DAPSONE
     Indication: Acquired immunodeficiency syndrome
     Dosage: 100 MILLIGRAM, DAILY
     Route: 065
  2. RIFABUTIN [Concomitant]
     Active Substance: RIFABUTIN
     Indication: Prophylaxis
     Dosage: 150 MILLIGRAM, DAILY
     Route: 065

REACTIONS (1)
  - Methaemoglobinaemia [Recovering/Resolving]
